FAERS Safety Report 7115666-5 (Version None)
Quarter: 2010Q4

REPORT INFORMATION
  Report Type: 
  Country: None (occurrence: None)
  Receive Date: 20101122
  Receipt Date: 20101108
  Transmission Date: 20110411
  Serious: Yes (Hospitalization)
  Sender: FDA-Public Use
  Company Number: PHHY2010DE76943

PATIENT
  Age: 82 Year
  Sex: Female
  Weight: 58 kg

DRUGS (13)
  1. DICLOFENAC SODIUM [Suspect]
     Indication: POLYMYALGIA RHEUMATICA
     Dosage: 75 MG, BID
     Route: 048
     Dates: start: 20100301, end: 20100706
  2. ACETYLSALICYLIC ACID [Suspect]
     Indication: ISCHAEMIC HEART DISEASE PROPHYLAXIS
     Dosage: 100 MG, QD
     Route: 048
     Dates: start: 20100101, end: 20100716
  3. PREDNISOLONE [Suspect]
     Indication: POLYMYALGIA RHEUMATICA
     Dosage: 12.5 MG, QD
     Route: 048
     Dates: start: 20100320
  4. ALLOPURINOL [Concomitant]
     Dosage: 150 MG, QD
     Route: 048
     Dates: start: 20100301
  5. CALCIMAGON-D3 [Concomitant]
     Dosage: ONE DOSAGE OF 500MG CALCIUM+ 400 IUVITAMIN D3
     Route: 048
     Dates: start: 20100301
  6. CARVEDILOL [Concomitant]
     Dosage: 12.5 MG, QD
     Route: 048
     Dates: start: 20100101, end: 20100716
  7. MESALAZINE [Concomitant]
     Dosage: 1 G, TID
     Route: 054
     Dates: start: 20100301
  8. PANTOPRAZOLE [Concomitant]
     Dosage: 40 MG, QD
     Route: 048
     Dates: start: 20100301
  9. SIMVASTATIN [Concomitant]
     Dosage: 10 MG, QD
     Route: 048
     Dates: start: 20100101
  10. SPIRONOLACTON 50 PLUS HEUMANN [Concomitant]
     Dosage: 1 DF, BID, 1 DOSAGE= 25MG SPIRONOLACTON+10 MG FUROSEMID
     Route: 048
     Dates: start: 20100101, end: 20100706
  11. THYRONAJOD [Concomitant]
     Dosage: 1 DF, QD, , 75 HENNING, 1 DF= 75 MICROGRAM LEVOTHYROXIN + 196.2 MICROGRAM KALIUMIODID
     Route: 048
     Dates: start: 20100101
  12. TILIDIN RETARD [Concomitant]
     Dosage: 1 DF, QD, 1DF=50MG TILIDIN+4MG NALOXON
     Route: 048
     Dates: start: 20100301
  13. ATACAND [Concomitant]
     Dosage: 4 MG, QD
     Route: 048
     Dates: start: 20100101, end: 20100706

REACTIONS (10)
  - ABDOMINAL PAIN [None]
  - BLOOD PRESSURE DECREASED [None]
  - CIRCULATORY COLLAPSE [None]
  - COLITIS [None]
  - DEHYDRATION [None]
  - DIARRHOEA [None]
  - GASTROINTESTINAL DISORDER [None]
  - GASTROINTESTINAL EROSION [None]
  - HAEMORRHAGE [None]
  - THROMBIN TIME PROLONGED [None]
